FAERS Safety Report 22914689 (Version 3)
Quarter: 2023Q4

REPORT INFORMATION
  Report Type: Spontaneous
  Country: JP (occurrence: JP)
  Receive Date: 20230907
  Receipt Date: 20231105
  Transmission Date: 20240110
  Serious: Yes (Other)
  Sender: FDA-Public Use
  Company Number: JP-002147023-NVSJ2023JP013348

PATIENT
  Age: 72 Year
  Sex: Male

DRUGS (1)
  1. BEOVU [Suspect]
     Active Substance: BROLUCIZUMAB-DBLL
     Indication: Age-related macular degeneration
     Dosage: 6 MG, RIGHT EYE
     Route: 031
     Dates: start: 20230829, end: 20230829

REACTIONS (3)
  - Macular oedema [Recovered/Resolved]
  - Condition aggravated [Recovered/Resolved]
  - Ocular vascular disorder [Recovered/Resolved]

NARRATIVE: CASE EVENT DATE: 20230903
